FAERS Safety Report 20240377 (Version 1)
Quarter: 2021Q4

REPORT INFORMATION
  Report Type: Spontaneous
  Country: CN (occurrence: CN)
  Receive Date: 20211228
  Receipt Date: 20211228
  Transmission Date: 20220303
  Serious: Yes (Other)
  Sender: FDA-Public Use
  Company Number: CN-PFIZER INC-202101806473

PATIENT
  Age: 51 Year
  Sex: Female
  Weight: 60 kg

DRUGS (2)
  1. METHYLPREDNISOLONE [Suspect]
     Active Substance: METHYLPREDNISOLONE
     Indication: Vitiligo
     Dosage: 1 TABLET, 1X/DAY
     Route: 048
     Dates: start: 20200721, end: 20211110
  2. GLYCINE\GLYCYRRHIZIN\METHIONINE [Suspect]
     Active Substance: GLYCINE\GLYCYRRHIZIN\METHIONINE
     Indication: Vitiligo
     Dosage: 3 TABLETS, 3X/DAY
     Route: 048
     Dates: start: 20210721, end: 20211110

REACTIONS (3)
  - Blood pressure increased [Unknown]
  - Face oedema [Unknown]
  - Off label use [Unknown]

NARRATIVE: CASE EVENT DATE: 20200721
